FAERS Safety Report 8405288-8 (Version None)
Quarter: 2012Q2

REPORT INFORMATION
  Report Type: 
  Country: None (occurrence: None)
  Receive Date: 20120603
  Receipt Date: 20120531
  Transmission Date: 20120825
  Serious: Yes (Hospitalization, Other)
  Sender: FDA-Public Use
  Company Number: US-AMGEN-USASP2012034076

PATIENT
  Sex: Male
  Weight: 113.38 kg

DRUGS (4)
  1. IMMUNE GLOBULIN NOS [Concomitant]
  2. PREDNISONE [Concomitant]
     Dosage: UNK
  3. RITUXAN [Concomitant]
     Dosage: UNK
     Dates: start: 20120401, end: 20120501
  4. NPLATE [Suspect]
     Indication: IDIOPATHIC THROMBOCYTOPENIC PURPURA
     Dosage: 7 MUG/KG, QWK
     Dates: start: 20110617, end: 20120101

REACTIONS (3)
  - PLATELET COUNT DECREASED [None]
  - THERAPEUTIC RESPONSE DECREASED [None]
  - HOSPITALISATION [None]
